FAERS Safety Report 11937056 (Version 4)
Quarter: 2016Q4

REPORT INFORMATION
  Report Type: Spontaneous
  Country: US (occurrence: US)
  Receive Date: 20160121
  Receipt Date: 20161106
  Transmission Date: 20170206
  Serious: Yes (Hospitalization, Disabling, Other)
  Sender: FDA-Public Use
  Company Number: US-BRISTOL-MYERS SQUIBB COMPANY-BMS-2016-002038

PATIENT
  Age: 54 Year
  Sex: Male
  Weight: 88.44 kg

DRUGS (4)
  1. ELIQUIS [Suspect]
     Active Substance: APIXABAN
     Indication: THROMBOSIS PROPHYLAXIS
     Dosage: 10 MG, BID
     Route: 048
     Dates: start: 201508, end: 201512
  2. HYDROCODONE [Concomitant]
     Active Substance: HYDROCODONE
     Indication: PRODUCT USED FOR UNKNOWN INDICATION
     Dosage: 7.5 MG, BID
     Route: 065
  3. ELIQUIS [Suspect]
     Active Substance: APIXABAN
     Indication: DEEP VEIN THROMBOSIS
     Route: 065
  4. ELIQUIS [Suspect]
     Active Substance: APIXABAN
     Indication: PULMONARY EMBOLISM
     Dosage: 10 MG, BID
     Route: 048
     Dates: end: 201605

REACTIONS (41)
  - Joint swelling [Recovering/Resolving]
  - Asthenia [Unknown]
  - Swelling [Unknown]
  - Skin disorder [Unknown]
  - Incorrect dose administered [Unknown]
  - Chest pain [Unknown]
  - Pain [Unknown]
  - Choking [Unknown]
  - Myocardial infarction [Unknown]
  - Blindness [Unknown]
  - Thrombosis [Unknown]
  - Impaired healing [Unknown]
  - Vision blurred [Unknown]
  - Haemoptysis [Unknown]
  - Dysuria [Unknown]
  - Facial pain [Unknown]
  - Drug ineffective [Unknown]
  - Hospitalisation [Unknown]
  - Cerebral small vessel ischaemic disease [Unknown]
  - Drug dose omission [Unknown]
  - Hypoaesthesia [Unknown]
  - Pulmonary embolism [Unknown]
  - Fall [Unknown]
  - Ear pain [Unknown]
  - Depression [Unknown]
  - Back pain [Recovering/Resolving]
  - Polyuria [Unknown]
  - Chromaturia [Unknown]
  - Myoclonus [Unknown]
  - Diarrhoea [Unknown]
  - Pain in extremity [Unknown]
  - Migraine [Unknown]
  - Eye pain [Unknown]
  - Emphysema [Unknown]
  - Muscular weakness [Recovering/Resolving]
  - Haemorrhage [Unknown]
  - Vitreous floaters [Unknown]
  - Libido decreased [Unknown]
  - Pulmonary mass [Unknown]
  - Dizziness [Unknown]
  - Gait disturbance [Unknown]

NARRATIVE: CASE EVENT DATE: 201602
